FAERS Safety Report 7744849-6 (Version None)
Quarter: 2011Q3

REPORT INFORMATION
  Report Type: 
  Country: None (occurrence: None)
  Receive Date: 20110912
  Receipt Date: 20110902
  Transmission Date: 20111222
  Serious: Yes (Congenital Anomaly)
  Sender: FDA-Public Use
  Company Number: FR-MERCK-1104FRA00144B1

PATIENT
  Age: 0 Day

DRUGS (2)
  1. METFORMIN HCL [Suspect]
     Indication: TYPE 2 DIABETES MELLITUS
     Route: 048
     Dates: end: 20110401
  2. JANUVIA [Suspect]
     Indication: TYPE 2 DIABETES MELLITUS
     Route: 064
     Dates: end: 20110401

REACTIONS (2)
  - VASCULAR MALFORMATION PERIPHERAL [None]
  - MATERNAL EXPOSURE DURING PREGNANCY [None]
